FAERS Safety Report 15823511 (Version 2)
Quarter: 2019Q1

REPORT INFORMATION
  Report Type: Spontaneous
  Country: FR (occurrence: FR)
  Receive Date: 20190114
  Receipt Date: 20190121
  Transmission Date: 20190417
  Serious: Yes (Hospitalization, Other)
  Sender: FDA-Public Use
  Company Number: PHHY2018FR179980

PATIENT
  Age: 39 Year
  Sex: Female

DRUGS (3)
  1. AMOXICILLIN. [Suspect]
     Active Substance: AMOXICILLIN
     Indication: PREMATURE RUPTURE OF MEMBRANES
  2. AMOXICILLIN. [Suspect]
     Active Substance: AMOXICILLIN
     Indication: OTITIS MEDIA
     Route: 065
  3. CEFTRIAXONE. [Suspect]
     Active Substance: CEFTRIAXONE
     Indication: PREMATURE RUPTURE OF MEMBRANES
     Route: 065

REACTIONS (4)
  - Live birth [Unknown]
  - Product use in unapproved indication [Unknown]
  - Clostridium difficile infection [Recovered/Resolved]
  - Maternal exposure during pregnancy [Recovered/Resolved]
